FAERS Safety Report 5103269-3 (Version None)
Quarter: 2006Q3

REPORT INFORMATION
  Report Type: 
  Country: None (occurrence: None)
  Receive Date: 20060913
  Receipt Date: 20060906
  Transmission Date: 20061208
  Serious: Yes (Life-Threatening, Hospitalization)
  Sender: FDA-Public Use
  Company Number: PHBS2006JP13657

PATIENT
  Age: 59 Year
  Sex: Male

DRUGS (1)
  1. TEGRETOL [Suspect]
     Indication: BLEPHAROSPASM
     Dosage: 200 MG/DAY
     Route: 048
     Dates: start: 20060809, end: 20060821

REACTIONS (2)
  - ECZEMA [None]
  - PLATELET COUNT DECREASED [None]
